FAERS Safety Report 5902850-9 (Version None)
Quarter: 2008Q3

REPORT INFORMATION
  Report Type: 
  Country: None (occurrence: None)
  Receive Date: 20080929
  Receipt Date: 20080929
  Transmission Date: 20090109
  Serious: No
  Sender: FDA-Public Use
  Company Number: None

PATIENT
  Age: 75 Year
  Sex: Male

DRUGS (1)
  1. MEPERIDINE HCL [Suspect]
     Indication: PAIN
     Dosage: 75 MG ONCE IM
     Route: 029
     Dates: start: 20080801, end: 20080801

REACTIONS (1)
  - CONVULSION [None]
